FAERS Safety Report 11626767 (Version 2)
Quarter: 2015Q4

REPORT INFORMATION
  Report Type: Spontaneous
  Country: US (occurrence: US)
  Receive Date: 20151013
  Receipt Date: 20151014
  Transmission Date: 20160304
  Serious: Yes (Other)
  Sender: FDA-Public Use
  Company Number: US-PFIZER INC-2015335411

PATIENT
  Age: 14 Year
  Sex: Male

DRUGS (1)
  1. DILANTIN [Suspect]
     Active Substance: PHENYTOIN
     Dosage: UNK

REACTIONS (10)
  - Dermatitis exfoliative [Unknown]
  - Lymphadenopathy [Unknown]
  - Lymphocytosis [Unknown]
  - Drug-induced liver injury [Unknown]
  - Pyrexia [Unknown]
  - Jaundice [Unknown]
  - Hepatomegaly [Unknown]
  - Chills [Unknown]
  - Splenomegaly [Unknown]
  - Eosinophilia [Unknown]
